FAERS Safety Report 9692944 (Version 1)
Quarter: 2013Q4

REPORT INFORMATION
  Report Type: Spontaneous
  Country: US (occurrence: US)
  Receive Date: 20131118
  Receipt Date: 20131118
  Transmission Date: 20140711
  Serious: No
  Sender: FDA-Public Use
  Company Number: US-GLAXOSMITHKLINE-A1038955A

PATIENT
  Age: 71 Year
  Sex: Male

DRUGS (9)
  1. COREG CR [Suspect]
     Indication: CORONARY ARTERY BYPASS
     Dosage: 80MG PER DAY
     Route: 048
     Dates: start: 1999
  2. LIPITOR [Suspect]
  3. NORVASC [Suspect]
  4. LORAZEPAM [Concomitant]
  5. OMEPRAZOLE [Concomitant]
  6. ASPIRIN [Concomitant]
  7. VITAMIN D [Concomitant]
  8. GERITOL [Concomitant]
  9. FISH OIL [Concomitant]

REACTIONS (1)
  - Local swelling [Not Recovered/Not Resolved]
